FAERS Safety Report 14756640 (Version 1)
Quarter: 2018Q2

REPORT INFORMATION
  Report Type: Spontaneous
  Country: US (occurrence: US)
  Receive Date: 20180413
  Receipt Date: 20180413
  Transmission Date: 20180711
  Serious: No
  Sender: FDA-Public Use
  Company Number: US-GLAXOSMITHKLINE-US2018059277

PATIENT
  Age: 59 Year
  Sex: Female

DRUGS (1)
  1. MEMBERS MARK NICOTINE [Suspect]
     Active Substance: NICOTINE
     Indication: PRODUCT USED FOR UNKNOWN INDICATION
     Dosage: 21 MG, UNK

REACTIONS (3)
  - Dizziness [Unknown]
  - Nausea [Unknown]
  - Application site rash [Unknown]
